FAERS Safety Report 13684143 (Version 4)
Quarter: 2019Q2

REPORT INFORMATION
  Report Type: Report from Study
  Country: US (occurrence: US)
  Receive Date: 20170623
  Receipt Date: 20190607
  Transmission Date: 20190711
  Serious: Yes (Other)
  Sender: FDA-Public Use
  Company Number: US-ASTELLAS-2017US010168

PATIENT
  Sex: Female

DRUGS (4)
  1. SOLIFENACIN [Suspect]
     Active Substance: SOLIFENACIN
     Indication: MICTURITION URGENCY
     Route: 048
  2. KEFLEX [Concomitant]
     Active Substance: CEPHALEXIN
     Indication: PRODUCT USED FOR UNKNOWN INDICATION
     Dosage: UNK UNK, UNKNOWN FREQ.
     Route: 065
  3. SOLIFENACIN [Suspect]
     Active Substance: SOLIFENACIN
     Indication: HYPERTONIC BLADDER
     Route: 048
     Dates: start: 201701
  4. SOLIFENACIN [Suspect]
     Active Substance: SOLIFENACIN
     Indication: INCONTINENCE
     Route: 048

REACTIONS (10)
  - Sepsis [Unknown]
  - Bladder pain [Unknown]
  - Dehydration [Unknown]
  - Malaise [Unknown]
  - Therapeutic product effect incomplete [Unknown]
  - Urinary tract infection [Unknown]
  - Bladder discomfort [Unknown]
  - Feeling abnormal [Unknown]
  - Dry mouth [Unknown]
  - Nausea [Unknown]
